FAERS Safety Report 21280940 (Version 3)
Quarter: 2022Q4

REPORT INFORMATION
  Report Type: Report from Study
  Country: FR (occurrence: None)
  Receive Date: 20220901
  Receipt Date: 20221110
  Transmission Date: 20230113
  Serious: Yes (Hospitalization)
  Sender: FDA-Public Use
  Company Number: FR-ROCHE-3168232

PATIENT
  Age: 79 Year
  Sex: Male
  Weight: 94 kg

DRUGS (12)
  1. ATEZOLIZUMAB [Suspect]
     Active Substance: ATEZOLIZUMAB
     Indication: Bladder transitional cell carcinoma
     Dosage: ON 27/APR/2022, RECEIVED LAST DOSE 1200 MG OF ATEZOLIZUMAB PRIOR TO ADVERSE EVENT (AE) AND SERIOUS A
     Route: 041
     Dates: start: 20210506
  2. CARBOPLATIN [Suspect]
     Active Substance: CARBOPLATIN
     Indication: Bladder transitional cell carcinoma
     Dosage: ON 06/APR/2022, RECEIVED LAST DOSE 200 MG OF ATEZOLIZUMAB PRIOR TO ADVERSE EVENT (AE) AND SERIOUS AD
     Route: 042
     Dates: start: 20210223
  3. PERINDOPRIL [Concomitant]
     Active Substance: PERINDOPRIL
     Dates: start: 20220819
  4. VILDAGLIPTIN [Concomitant]
     Active Substance: VILDAGLIPTIN
     Dates: start: 20220819
  5. KARDEGIC [Concomitant]
     Active Substance: ASPIRIN DL-LYSINE
     Dates: start: 20220819
  6. BISOPROLOL [Concomitant]
     Active Substance: BISOPROLOL
     Dates: start: 20220819
  7. METFORMIN [Concomitant]
     Active Substance: METFORMIN HYDROCHLORIDE
     Dosage: 1 TABLET AT 8 AM IN THE MORNING, 1 TABLET AT 12 PM NOON, 1 TABLET AT 6 PM IN THE EVENING (WHICH IS 3
     Dates: start: 20220818
  8. ATORVASTATIN [Concomitant]
     Active Substance: ATORVASTATIN
     Dates: start: 20220818
  9. LANSOPRAZOLE [Concomitant]
     Active Substance: LANSOPRAZOLE
     Dates: start: 20220818
  10. DOLIPRANE [Concomitant]
     Active Substance: ACETAMINOPHEN
     Dosage: 1 TABLET AT 8 AM IN THE MORNING, 1 TABLET AT 12 PM NOON, 1 TABLET AT 6 PM IN THE EVENING (WHICH IS 3
     Dates: start: 20220818
  11. TAMSULOSIN [Concomitant]
     Active Substance: TAMSULOSIN
     Dosage: PREFERABLY IN THE MORNING, AFTER A HEARTY BREAKFAST, OR IF NOT, AFTER ANOTHER MEAL.
     Dates: start: 20220818
  12. ZOPICLONE [Concomitant]
     Active Substance: ZOPICLONE
     Dates: start: 20220818

REACTIONS (1)
  - Pemphigoid [Not Recovered/Not Resolved]

NARRATIVE: CASE EVENT DATE: 20220713
